FAERS Safety Report 10031873 (Version 2)
Quarter: 2014Q3

REPORT INFORMATION
  Report Type: Spontaneous
  Country: CO (occurrence: CO)
  Receive Date: 20140324
  Receipt Date: 20140715
  Transmission Date: 20150326
  Serious: Yes (Other)
  Sender: FDA-Public Use
  Company Number: CO-PFIZER INC-2014083307

PATIENT
  Age: 62 Year
  Sex: Female

DRUGS (7)
  1. MEDROL [Suspect]
     Active Substance: METHYLPREDNISOLONE
     Dosage: 4 MG, 2X/DAY
     Route: 048
     Dates: start: 2004
  2. MEDROL [Suspect]
     Active Substance: METHYLPREDNISOLONE
     Indication: RHEUMATOID ARTHRITIS
     Dosage: 12 MG, 2X/DAY
     Route: 048
     Dates: start: 2002, end: 2004
  3. MEDROL [Suspect]
     Active Substance: METHYLPREDNISOLONE
     Dosage: 1 MG, 2X/DAY
     Route: 048
     Dates: end: 201403
  4. MEDROL [Suspect]
     Active Substance: METHYLPREDNISOLONE
     Dosage: 2 MG, 1X/DAY
     Route: 048
     Dates: start: 2014
  5. MEDROL [Suspect]
     Active Substance: METHYLPREDNISOLONE
     Dosage: 2 MG, 2X/DAY
     Route: 048
  6. XELJANZ [Concomitant]
     Active Substance: TOFACITINIB CITRATE
     Indication: RHEUMATOID ARTHRITIS
     Dosage: 5 MG, 2X/DAY
     Route: 048
     Dates: start: 201402, end: 2014
  7. XELJANZ [Concomitant]
     Active Substance: TOFACITINIB CITRATE
     Dosage: 5 MG, 2X/DAY
     Route: 048
     Dates: start: 20140706

REACTIONS (4)
  - Cushingoid [Recovering/Resolving]
  - Ulcer [Unknown]
  - Myocardial infarction [Recovered/Resolved]
  - Weight increased [Recovering/Resolving]

NARRATIVE: CASE EVENT DATE: 2004
